FAERS Safety Report 9679972 (Version 3)
Quarter: 2014Q1

REPORT INFORMATION
  Report Type: Report from Study
  Country: AU (occurrence: AU)
  Receive Date: 20131110
  Receipt Date: 20140113
  Transmission Date: 20141002
  Serious: Yes (Hospitalization)
  Sender: FDA-Public Use
  Company Number: PHHO2013AU014406

PATIENT
  Age: 62 Year
  Sex: Female

DRUGS (15)
  1. AMN107 [Suspect]
     Indication: CHRONIC MYELOID LEUKAEMIA
     Dosage: 400 MG, BID
     Route: 048
     Dates: start: 20120801
  2. IRBESARTAN [Concomitant]
     Indication: HYPERTENSION
     Dosage: 75 MG, QD
     Route: 048
     Dates: start: 20130502
  3. VITAMIN B [Concomitant]
     Indication: HYPERTENSION
     Dosage: UNK
     Route: 048
     Dates: start: 20120801, end: 20130320
  4. ROSUVASTATIN [Concomitant]
     Indication: HYPERTENSION
     Dosage: 5 MG, UNK
     Route: 048
     Dates: end: 20131029
  5. PANTOPRAZOLE [Concomitant]
     Indication: PROPHYLAXIS
     Dosage: 40 MG, QD
     Route: 048
     Dates: start: 20131030
  6. MAGMIN [Concomitant]
     Indication: PROPHYLAXIS
     Dosage: 2 DF, QD
     Route: 048
     Dates: start: 20130505, end: 20130505
  7. PANADEINE [Concomitant]
     Indication: HEADACHE
     Dosage: 1 G, QD
     Route: 048
     Dates: start: 20130506, end: 20130506
  8. WARFARIN [Concomitant]
     Indication: PROPHYLAXIS
     Dosage: 5 MG, QD
     Route: 048
     Dates: start: 20120706
  9. WARFARIN [Concomitant]
     Dosage: 5 MG, QD
     Route: 048
     Dates: start: 20131030, end: 20131104
  10. WARFARIN [Concomitant]
     Dosage: 6 MG, QD
     Route: 048
     Dates: start: 20131105, end: 20131105
  11. WARFARIN [Concomitant]
     Dosage: 6.5 MG, QD
     Route: 048
     Dates: start: 20131106
  12. COLOXYL C SENNA [Concomitant]
  13. CARTIA                                  /AUS/ [Concomitant]
     Indication: PROPHYLAXIS
     Dosage: 100 MG, QD
     Route: 048
     Dates: start: 20130507, end: 20130507
  14. ASPIRIN [Concomitant]
  15. METFORMIN [Concomitant]
     Indication: TYPE 2 DIABETES MELLITUS
     Dosage: 500 MG, QD
     Route: 048
     Dates: start: 200812, end: 201212

REACTIONS (1)
  - Brain stem stroke [Recovering/Resolving]
